FAERS Safety Report 4655085-4 (Version None)
Quarter: 2005Q2

REPORT INFORMATION
  Report Type: 
  Country: None (occurrence: None)
  Receive Date: 20050503
  Receipt Date: 20050425
  Transmission Date: 20051028
  Serious: Yes (Other)
  Sender: FDA-Public Use
  Company Number: 2005UW04498

PATIENT
  Age: 9 Year
  Sex: Male
  Weight: 38.1022 kg

DRUGS (4)
  1. SEROQUEL [Suspect]
     Indication: ABNORMAL BEHAVIOUR
     Dosage: 200 MG DAILY PO
     Route: 048
     Dates: end: 20050201
  2. SEROQUEL [Suspect]
     Indication: AGGRESSION
     Dosage: 200 MG DAILY PO
     Route: 048
     Dates: end: 20050201
  3. CLONIDINE [Concomitant]
  4. BUPROPION [Concomitant]

REACTIONS (1)
  - WHITE BLOOD CELL COUNT DECREASED [None]
